FAERS Safety Report 25040257 (Version 2)
Quarter: 2025Q1

REPORT INFORMATION
  Report Type: Spontaneous
  Country: US (occurrence: US)
  Receive Date: 20250305
  Receipt Date: 20250312
  Transmission Date: 20250408
  Serious: No
  Sender: CIPLA
  Company Number: US-CIPLA LTD.-2025US02478

PATIENT

DRUGS (1)
  1. ALBUTEROL [Suspect]
     Active Substance: ALBUTEROL
     Indication: Product used for unknown indication
     Route: 065

REACTIONS (5)
  - Dyspnoea [Unknown]
  - Drug dose omission by device [Unknown]
  - Device delivery system issue [Unknown]
  - Device difficult to use [Unknown]
  - Device breakage [Unknown]
